FAERS Safety Report 9206787 (Version 2)
Quarter: 2013Q2

REPORT INFORMATION
  Report Type: Spontaneous
  Country: US (occurrence: None)
  Receive Date: 20120731
  Receipt Date: 20121101
  Transmission Date: 20140414
  Serious: Yes (Other)
  Sender: FDA-Public Use
  Company Number: 2012MZ000351

PATIENT
  Age: 68 Year
  Sex: Female

DRUGS (1)
  1. XEOMIN [Suspect]
     Indication: BLEPHAROSPASM
     Dosage: 60 U?
     Dates: start: 201206, end: 201206

REACTIONS (2)
  - Therapeutic response decreased [None]
  - Diplopia [None]
